FAERS Safety Report 17636366 (Version 1)
Quarter: 2020Q2

REPORT INFORMATION
  Report Type: Spontaneous
  Country: US (occurrence: US)
  Receive Date: 20200403
  Receipt Date: 20200403
  Transmission Date: 20200713
  Serious: Yes (Disabling)
  Sender: FDA-Public Use
  Company Number: None

PATIENT

DRUGS (6)
  1. COREG [Concomitant]
     Active Substance: CARVEDILOL
  2. BIOTIN [Concomitant]
     Active Substance: BIOTIN
  3. VIT D [Concomitant]
     Active Substance: VITAMIN D NOS
  4. CALCIUM [Concomitant]
     Active Substance: CALCIUM
  5. IBANDRONATE SODIUM TABLET [Suspect]
     Active Substance: IBANDRONATE SODIUM
     Indication: BONE DENSITY ABNORMAL
     Dosage: ?          QUANTITY:3PACKS-ONE TABLET ;?
     Route: 048
     Dates: start: 20191212, end: 20200214
  6. ZOCOR [Concomitant]
     Active Substance: SIMVASTATIN

REACTIONS (7)
  - Feeling abnormal [None]
  - Musculoskeletal stiffness [None]
  - Pain in extremity [None]
  - Peripheral coldness [None]
  - Musculoskeletal disorder [None]
  - Therapy cessation [None]
  - Pain [None]

NARRATIVE: CASE EVENT DATE: 20191212
